FAERS Safety Report 5863435-6 (Version None)
Quarter: 2008Q3

REPORT INFORMATION
  Report Type: 
  Country: None (occurrence: None)
  Receive Date: 20080828
  Receipt Date: 20080825
  Transmission Date: 20090109
  Serious: Yes (Life-Threatening, Other)
  Sender: FDA-Public Use
  Company Number: PHHY2008ZA13853

PATIENT
  Sex: Male
  Weight: 64 kg

DRUGS (11)
  1. SANDIMMUNE [Suspect]
     Indication: HEART TRANSPLANT
     Dosage: 200 MG, Q12H
     Route: 048
     Dates: start: 20080704, end: 20080709
  2. SANDIMMUNE [Suspect]
     Indication: IMMUNOSUPPRESSION
     Dosage: 350 MG, Q12H
     Dates: start: 20080728
  3. SANDIMMUNE [Suspect]
     Dosage: 375 MG, Q12H
     Dates: start: 20080804
  4. PREDNISONE TAB [Concomitant]
     Indication: IMMUNOSUPPRESSION
     Dosage: 15 MG/DAY
     Route: 048
     Dates: start: 20080509, end: 20080728
  5. AZATHIOPRINE [Concomitant]
     Indication: IMMUNOSUPPRESSION
     Dosage: 75 MG, QHS
     Route: 048
     Dates: start: 20080509, end: 20080728
  6. CELLCEPT [Concomitant]
  7. FERROUS SULFATE TAB [Concomitant]
  8. ASCORBIC ACID [Concomitant]
  9. FOLATE SODIUM [Concomitant]
  10. NORVASC [Concomitant]
  11. ENALAPRIL MALEATE [Concomitant]

REACTIONS (3)
  - HEPATIC FUNCTION ABNORMAL [None]
  - IMMUNOSUPPRESSANT DRUG LEVEL DECREASED [None]
  - IMMUNOSUPPRESSANT DRUG LEVEL INCREASED [None]
